FAERS Safety Report 12989999 (Version 1)
Quarter: 2016Q4

REPORT INFORMATION
  Report Type: Spontaneous
  Country: TW (occurrence: TW)
  Receive Date: 20161201
  Receipt Date: 20161201
  Transmission Date: 20170207
  Serious: Yes (Other)
  Sender: FDA-Public Use
  Company Number: ALCN2016TW007920

PATIENT
  Age: 67 Year
  Sex: Male

DRUGS (5)
  1. CIPROFLOXACIN. [Suspect]
     Active Substance: CIPROFLOXACIN
     Indication: ENDOPHTHALMITIS
     Dosage: 1 DF, BID
     Route: 048
  2. MOXIFLOXACIN. [Suspect]
     Active Substance: MOXIFLOXACIN
     Indication: ENDOPHTHALMITIS
     Dosage: UNK
     Route: 047
  3. AMIKACIN [Suspect]
     Active Substance: AMIKACIN
     Indication: ENDOPHTHALMITIS
     Dosage: UNK
     Route: 047
  4. CLARITHROMYCIN. [Suspect]
     Active Substance: CLARITHROMYCIN
     Indication: ENDOPHTHALMITIS
     Dosage: 1 DF, BID
     Route: 048
  5. PREDNISOLONE ACETATE. [Suspect]
     Active Substance: PREDNISOLONE ACETATE
     Indication: ENDOPHTHALMITIS
     Dosage: UNK
     Route: 047

REACTIONS (6)
  - Eye abscess [Unknown]
  - Necrotising scleritis [Unknown]
  - Eye inflammation [Recovered/Resolved]
  - Condition aggravated [Unknown]
  - Product use issue [Unknown]
  - Visual acuity reduced [Unknown]
